FAERS Safety Report 21699454 (Version 2)
Quarter: 2022Q4

REPORT INFORMATION
  Report Type: Spontaneous
  Country: BR (occurrence: BR)
  Receive Date: 20221208
  Receipt Date: 20221226
  Transmission Date: 20230113
  Serious: Yes (Other)
  Sender: FDA-Public Use
  Company Number: BR-SA-SAC20221206001323

PATIENT
  Sex: Female
  Weight: 94 kg

DRUGS (1)
  1. FABRAZYME [Suspect]
     Active Substance: AGALSIDASE BETA
     Dosage: 2 DF, Q15D
     Route: 065

REACTIONS (5)
  - Congenital cystic kidney disease [Unknown]
  - Myocardial infarction [Unknown]
  - Blood cholesterol increased [Unknown]
  - Hypertension [Unknown]
  - Hypoaesthesia [Unknown]

NARRATIVE: CASE EVENT DATE: 20070101
